FAERS Safety Report 14365380 (Version 2)
Quarter: 2018Q4

REPORT INFORMATION
  Report Type: Spontaneous
  Country: US (occurrence: US)
  Receive Date: 20180108
  Receipt Date: 20181031
  Transmission Date: 20190204
  Serious: No
  Sender: FDA-Public Use
  Company Number: US-BIOGEN-2017BI00501494

PATIENT
  Sex: Female

DRUGS (1)
  1. TYSABRI [Suspect]
     Active Substance: NATALIZUMAB
     Indication: MULTIPLE SCLEROSIS
     Route: 065
     Dates: start: 20170621

REACTIONS (5)
  - Bradyphrenia [Unknown]
  - Memory impairment [Unknown]
  - Vertigo [Unknown]
  - Cognitive disorder [Unknown]
  - Product dose omission [Unknown]
